FAERS Safety Report 10845521 (Version 1)
Quarter: 2015Q1

REPORT INFORMATION
  Report Type: Spontaneous
  Country: US (occurrence: US)
  Receive Date: 20150220
  Receipt Date: 20150220
  Transmission Date: 20150721
  Serious: Yes (Other)
  Sender: FDA-Public Use
  Company Number: US-ABBVIE-14P-163-1313215-00

PATIENT
  Age: 45 Year
  Sex: Male

DRUGS (1)
  1. HUMIRA [Suspect]
     Active Substance: ADALIMUMAB
     Indication: ACNE CONGLOBATA
     Route: 065
     Dates: end: 20131211

REACTIONS (9)
  - Pleurisy [Unknown]
  - Osteoarthritis [Unknown]
  - Activities of daily living impaired [Unknown]
  - Burning sensation [Unknown]
  - Folliculitis [Not Recovered/Not Resolved]
  - Dyspnoea [Unknown]
  - Lupus-like syndrome [Not Recovered/Not Resolved]
  - Rheumatoid arthritis [Unknown]
  - Musculoskeletal discomfort [Unknown]
